FAERS Safety Report 16858544 (Version 1)
Quarter: 2019Q3

REPORT INFORMATION
  Report Type: Spontaneous
  Country: IT (occurrence: IT)
  Receive Date: 20190926
  Receipt Date: 20190926
  Transmission Date: 20191005
  Serious: Yes (Other)
  Sender: FDA-Public Use
  Company Number: IT-MYLANLABS-2019M1089406

PATIENT
  Age: 78 Year
  Sex: Female
  Weight: 95 kg

DRUGS (1)
  1. TRASTUZUMAB. [Suspect]
     Active Substance: TRASTUZUMAB
     Indication: BREAST CANCER
     Dosage: 700 MILLIGRAM, CYCLE
     Route: 042
     Dates: start: 20190408

REACTIONS (3)
  - Chills [Recovering/Resolving]
  - Dyspnoea [Recovering/Resolving]
  - Hyperaemia [Recovering/Resolving]

NARRATIVE: CASE EVENT DATE: 20190408
